FAERS Safety Report 15688980 (Version 1)
Quarter: 2018Q4

REPORT INFORMATION
  Report Type: Spontaneous
  Country: US (occurrence: US)
  Receive Date: 20181121
  Receipt Date: 20181121
  Transmission Date: 20190205
  Serious: Yes (Hospitalization)
  Sender: FDA-Public Use
  Company Number: None

PATIENT
  Age: 84 Year
  Weight: 96.16 kg

DRUGS (1)
  1. DIVALPROEX [Suspect]
     Active Substance: DIVALPROEX SODIUM
     Indication: DEMENTIA
     Route: 048
     Dates: start: 20181010, end: 20181024

REACTIONS (3)
  - Agitation [None]
  - Confusional state [None]
  - Aggression [None]

NARRATIVE: CASE EVENT DATE: 20181024
